FAERS Safety Report 8741863 (Version 2)
Quarter: 2012Q4

REPORT INFORMATION
  Report Type: 
  Country: US (occurrence: US)
  Receive Date: 20120824
  Receipt Date: 20120906
  Transmission Date: 20130627
  Serious: No
  Sender: FDA-Public Use
  Company Number: US-PFIZER INC-2012203228

PATIENT
  Age: 59 Year
  Sex: Male
  Weight: 123 kg

DRUGS (11)
  1. GENOTROPIN [Suspect]
     Dosage: 0.2 mg, 1x/day
     Route: 058
  2. XANAX XR [Concomitant]
     Dosage: 0.5 mg
  3. ZOLOFT [Concomitant]
     Dosage: 25 mg
  4. ANDROGEL [Concomitant]
     Dosage: UNK
  5. METFORMIN [Concomitant]
     Dosage: 500 mg
  6. QUINAPRIL [Concomitant]
     Dosage: 10 mg
  7. DESMOPRESSIN [Concomitant]
     Dosage: 0.1 mg
  8. LEVOTHYROXINE [Concomitant]
     Dosage: 25 ug
  9. LEXAPRO [Concomitant]
     Dosage: 5 mg
  10. HYDROCORT [Concomitant]
     Dosage: 5 mg
  11. LORTAB [Concomitant]
     Dosage: UNK

REACTIONS (5)
  - Neck pain [Unknown]
  - Musculoskeletal pain [Unknown]
  - Fatigue [Unknown]
  - Anxiety [Unknown]
  - Depression [Unknown]
